FAERS Safety Report 8589836-3 (Version None)
Quarter: 2012Q3

REPORT INFORMATION
  Report Type: 
  Country: None (occurrence: None)
  Receive Date: 20120813
  Receipt Date: 20120807
  Transmission Date: 20120928
  Serious: Yes (Other)
  Sender: FDA-Public Use
  Company Number: JP-VERTEX PHARMACEUTICALS INC.-AE-2012-011883

PATIENT
  Age: 63 Year
  Sex: Male

DRUGS (11)
  1. PURSENNID [Concomitant]
     Route: 048
     Dates: start: 20120319
  2. TELAVIC (TELAPREVIR) [Suspect]
     Indication: HEPATITIS C
     Route: 048
     Dates: start: 20120307, end: 20120318
  3. PEGINTERFERON ALFA-2B [Concomitant]
     Route: 058
     Dates: end: 20120528
  4. RIBAVIRIN [Concomitant]
     Indication: HEPATITIS C
     Route: 048
     Dates: start: 20120307, end: 20120321
  5. PEGINTERFERON ALFA-2B [Concomitant]
     Indication: HEPATITIS C
     Route: 058
     Dates: start: 20120307, end: 20120416
  6. PEGINTERFERON ALFA-2B [Concomitant]
     Route: 058
     Dates: start: 20120417
  7. LANSOPRAZOLE [Concomitant]
     Route: 048
     Dates: start: 20120417
  8. RIBAVIRIN [Concomitant]
     Route: 048
     Dates: start: 20120322, end: 20120409
  9. TELAVIC (TELAPREVIR) [Suspect]
     Route: 048
     Dates: start: 20120319, end: 20120528
  10. RIBAVIRIN [Concomitant]
     Route: 048
     Dates: start: 20120410
  11. PEGINTERFERON ALFA-2B [Concomitant]
     Route: 058
     Dates: start: 20120529

REACTIONS (1)
  - WHITE BLOOD CELL COUNT DECREASED [None]
